FAERS Safety Report 7781097-8 (Version None)
Quarter: 2011Q3

REPORT INFORMATION
  Report Type: 
  Country: None (occurrence: None)
  Receive Date: 20110923
  Receipt Date: 20110913
  Transmission Date: 20111222
  Serious: Yes (Other)
  Sender: FDA-Public Use
  Company Number: 2011-3797

PATIENT
  Age: 64 Year
  Sex: Female

DRUGS (1)
  1. APO-GO AMPOULES (APO-GO) (APOMORPHINE HYDROCHLORIDE) (APOMORPHINE HYDR [Suspect]
     Indication: PRODUCT USED FOR UNKNOWN INDICATION
     Dosage: 0.85ML/HR PLUS A BOLUS OF 0.41ML (0.85ML/HR PLUS A BOLUS OF 0.41ML)

REACTIONS (2)
  - ROAD TRAFFIC ACCIDENT [None]
  - NARCOLEPSY [None]
